FAERS Safety Report 25636394 (Version 2)
Quarter: 2025Q4

REPORT INFORMATION
  Report Type: Spontaneous
  Country: EU (occurrence: EU)
  Receive Date: 20250803
  Receipt Date: 20251103
  Transmission Date: 20260118
  Serious: Yes (Other)
  Sender: JOHNSON AND JOHNSON
  Company Number: EU-JNJFOC-20250729747

PATIENT
  Age: 9 Decade
  Sex: Male
  Weight: 92 kg

DRUGS (1)
  1. TECVAYLI [Suspect]
     Active Substance: TECLISTAMAB-CQYV
     Indication: Plasma cell myeloma
     Route: 065
     Dates: start: 20241220, end: 20250723

REACTIONS (3)
  - Mechanical ileus [Not Recovered/Not Resolved]
  - Post procedural infection [Not Recovered/Not Resolved]
  - General physical health deterioration [Not Recovered/Not Resolved]
